FAERS Safety Report 20862052 (Version 6)
Quarter: 2024Q1

REPORT INFORMATION
  Report Type: Report from Study
  Country: US (occurrence: US)
  Receive Date: 20220523
  Receipt Date: 20240119
  Transmission Date: 20240410
  Serious: Yes (Other)
  Sender: FDA-Public Use
  Company Number: US-OTSUKA-2022_028175

PATIENT
  Sex: Male

DRUGS (4)
  1. TOLVAPTAN [Suspect]
     Active Substance: TOLVAPTAN
     Indication: Congenital cystic kidney disease
     Dosage: UNK
     Route: 065
     Dates: start: 20220504
  2. HYDROCHLOROTHIAZIDE [Suspect]
     Active Substance: HYDROCHLOROTHIAZIDE
     Indication: Product used for unknown indication
     Dosage: 25 MG, QD
     Route: 065
  3. METOPROLOL [Suspect]
     Active Substance: METOPROLOL
     Indication: Product used for unknown indication
     Dosage: 25 MG, BID
     Route: 065
  4. METOPROLOL [Suspect]
     Active Substance: METOPROLOL
     Dosage: 25 MG, QD (DOSE REDUCED)
     Route: 065

REACTIONS (17)
  - Oxygen saturation decreased [Unknown]
  - Syncope [Unknown]
  - Motion sickness [Recovered/Resolved]
  - Feeling abnormal [Unknown]
  - Illness [Unknown]
  - Balance disorder [Unknown]
  - Nasopharyngitis [Unknown]
  - Cold sweat [Unknown]
  - Blood pressure decreased [Unknown]
  - Nausea [Recovered/Resolved]
  - Blood creatinine increased [Unknown]
  - Polydipsia [Unknown]
  - Dizziness [Not Recovered/Not Resolved]
  - Polyuria [Unknown]
  - Pollakiuria [Unknown]
  - Alanine aminotransferase increased [Unknown]
  - Product dose omission issue [Unknown]

NARRATIVE: CASE EVENT DATE: 20220517
